FAERS Safety Report 5748978-8 (Version None)
Quarter: 2008Q2

REPORT INFORMATION
  Report Type: 
  Country: None (occurrence: None)
  Receive Date: 20080527
  Receipt Date: 20080520
  Transmission Date: 20081010
  Serious: Yes (Hospitalization)
  Sender: FDA-Public Use
  Company Number: US-BRISTOL-MYERS SQUIBB COMPANY-14203608

PATIENT
  Age: 85 Year
  Sex: Male

DRUGS (8)
  1. PRINIVIL [Suspect]
     Indication: HYPERTENSION
     Route: 048
     Dates: start: 20031101
  2. METOPROLOL TARTRATE [Suspect]
     Indication: HYPERTENSION
     Route: 065
     Dates: start: 20030101
  3. SUDAFED 12 HOUR [Concomitant]
  4. SYNTHROID [Concomitant]
  5. ZOCOR [Concomitant]
  6. AMIODARONE [Concomitant]
  7. ISOSORBIDE DINITRATE [Concomitant]
  8. NITROGLYCERIN [Concomitant]

REACTIONS (1)
  - HYPOTENSION [None]
